FAERS Safety Report 12773707 (Version 1)
Quarter: 2016Q3

REPORT INFORMATION
  Report Type: Spontaneous
  Country: AT (occurrence: AT)
  Receive Date: 20160923
  Receipt Date: 20160923
  Transmission Date: 20161109
  Serious: Yes (Hospitalization, Other)
  Sender: FDA-Public Use
  Company Number: AT-AMGEN-AUTSP2016128903

PATIENT
  Age: 42 Year
  Sex: Female

DRUGS (13)
  1. LETROZOL [Concomitant]
     Active Substance: LETROZOLE
     Indication: BREAST CANCER METASTATIC
     Dosage: UNK
     Dates: start: 201402
  2. DULOXETINA [Concomitant]
     Active Substance: DULOXETINE
     Dosage: UNK
  3. EXEMESTAN [Concomitant]
     Active Substance: EXEMESTANE
     Dosage: UNK
  4. IBUPROFEN. [Concomitant]
     Active Substance: IBUPROFEN
     Dosage: UNK
  5. HERCEPTIN [Suspect]
     Active Substance: TRASTUZUMAB
     Dosage: UNK
     Route: 065
     Dates: start: 201402, end: 201406
  6. TRAMADOL. [Concomitant]
     Active Substance: TRAMADOL
     Dosage: 300 MG, UNK
  7. NEULASTA [Suspect]
     Active Substance: PEGFILGRASTIM
     Indication: PRODUCT USED FOR UNKNOWN INDICATION
     Dosage: UNK
     Route: 065
  8. DOCETAXEL. [Suspect]
     Active Substance: DOCETAXEL
     Indication: BREAST CANCER METASTATIC
     Dosage: 6 CYCLES
     Route: 065
     Dates: start: 20130819, end: 201402
  9. DENOSUMAB [Concomitant]
     Active Substance: DENOSUMAB
     Dosage: UNK
  10. PREGABALIN. [Concomitant]
     Active Substance: PREGABALIN
     Dosage: 300 MG, QD (DAILY)
  11. PERJETA [Suspect]
     Active Substance: PERTUZUMAB
     Indication: BREAST CANCER METASTATIC
     Dosage: 6 CYCLES
     Route: 065
     Dates: start: 20130819, end: 201402
  12. GABAPENTIN. [Concomitant]
     Active Substance: GABAPENTIN
     Dosage: UNK
  13. HERCEPTIN [Suspect]
     Active Substance: TRASTUZUMAB
     Indication: BREAST CANCER METASTATIC
     Dosage: 6 CYCLES
     Route: 065
     Dates: start: 20130819, end: 201402

REACTIONS (16)
  - Subclavian vein thrombosis [Unknown]
  - Arthralgia [Unknown]
  - Nausea [Unknown]
  - Vomiting [Recovered/Resolved]
  - Myalgia [Unknown]
  - Weight decreased [Unknown]
  - Cardiomyopathy [Recovered/Resolved]
  - Polyneuropathy [Unknown]
  - Bone pain [Unknown]
  - Hypocalcaemia [Unknown]
  - Jugular vein thrombosis [Unknown]
  - Hypokalaemia [Unknown]
  - Hyponatraemia [Unknown]
  - Pulmonary congestion [Recovered/Resolved]
  - Anaphylactic reaction [Unknown]
  - Pleural effusion [Recovered/Resolved]

NARRATIVE: CASE EVENT DATE: 201309
